FAERS Safety Report 7124641-6 (Version None)
Quarter: 2010Q4

REPORT INFORMATION
  Report Type: 
  Country: None (occurrence: None)
  Receive Date: 20101129
  Receipt Date: 20101115
  Transmission Date: 20110411
  Serious: Yes (Hospitalization, Other)
  Sender: FDA-Public Use
  Company Number: US-ELI_LILLY_AND_COMPANY-US201010002664

PATIENT
  Age: 83 Year
  Sex: Female
  Weight: 107.3 kg

DRUGS (1)
  1. FORTEO [Suspect]

REACTIONS (1)
  - FRACTURE NONUNION [None]
